FAERS Safety Report 5429186-7 (Version None)
Quarter: 2007Q3

REPORT INFORMATION
  Report Type: 
  Country: None (occurrence: None)
  Receive Date: 20070829
  Receipt Date: 20070822
  Transmission Date: 20080115
  Serious: Yes (Hospitalization)
  Sender: FDA-Public Use
  Company Number: JP-ASTRAZENECA-2007AP03952

PATIENT
  Age: 28879 Day
  Sex: Male
  Weight: 53.4 kg

DRUGS (4)
  1. CASODEX [Suspect]
     Indication: PROSTATE CANCER
     Route: 048
     Dates: start: 20070327, end: 20070528
  2. CASODEX [Suspect]
     Route: 048
     Dates: start: 20070622, end: 20070626
  3. TEGRETOL [Suspect]
     Indication: PAIN IN JAW
     Route: 048
     Dates: start: 20070502, end: 20070514
  4. SAIKO-KEISHI-TO [Concomitant]
     Route: 048
     Dates: start: 20070502, end: 20070514

REACTIONS (1)
  - DRUG ERUPTION [None]
